FAERS Safety Report 25520845 (Version 1)
Quarter: 2025Q3

REPORT INFORMATION
  Report Type: Spontaneous
  Country: EU (occurrence: EU)
  Receive Date: 20250705
  Receipt Date: 20250705
  Transmission Date: 20251021
  Serious: Yes (Other)
  Sender: CELLTRION
  Company Number: EU-AMGEN-ITASP2025034060

PATIENT

DRUGS (16)
  1. ADALIMUMAB [Suspect]
     Active Substance: ADALIMUMAB
     Indication: Psoriatic arthropathy
     Route: 065
  2. ADALIMUMAB [Suspect]
     Active Substance: ADALIMUMAB
     Indication: Dermatitis atopic
  3. USTEKINUMAB [Suspect]
     Active Substance: USTEKINUMAB
     Indication: Psoriatic arthropathy
     Route: 065
  4. USTEKINUMAB [Suspect]
     Active Substance: USTEKINUMAB
     Indication: Dermatitis atopic
  5. METHOTREXATE [Concomitant]
     Active Substance: METHOTREXATE
     Indication: Psoriatic arthropathy
  6. METHOTREXATE [Concomitant]
     Active Substance: METHOTREXATE
     Indication: Dermatitis atopic
  7. CYCLOSPORINE [Concomitant]
     Active Substance: CYCLOSPORINE
     Indication: Psoriatic arthropathy
  8. CYCLOSPORINE [Concomitant]
     Active Substance: CYCLOSPORINE
     Indication: Dermatitis atopic
  9. LEFLUNOMIDE [Concomitant]
     Active Substance: LEFLUNOMIDE
     Indication: Psoriatic arthropathy
  10. LEFLUNOMIDE [Concomitant]
     Active Substance: LEFLUNOMIDE
     Indication: Dermatitis atopic
  11. SECUKINUMAB [Concomitant]
     Active Substance: SECUKINUMAB
     Indication: Psoriatic arthropathy
  12. SECUKINUMAB [Concomitant]
     Active Substance: SECUKINUMAB
     Indication: Dermatitis atopic
  13. GOLIMUMAB [Concomitant]
     Active Substance: GOLIMUMAB
     Indication: Psoriatic arthropathy
  14. GOLIMUMAB [Concomitant]
     Active Substance: GOLIMUMAB
     Indication: Dermatitis atopic
  15. TOFACITINIB [Concomitant]
     Active Substance: TOFACITINIB
     Indication: Psoriatic arthropathy
  16. TOFACITINIB [Concomitant]
     Active Substance: TOFACITINIB
     Indication: Dermatitis atopic

REACTIONS (6)
  - Psoriatic arthropathy [Recovered/Resolved]
  - Dermatitis atopic [Recovering/Resolving]
  - Drug intolerance [Unknown]
  - Oral herpes [Unknown]
  - Drug ineffective [Unknown]
  - Intentional product use issue [Unknown]
